FAERS Safety Report 9226498 (Version 1)
Quarter: 2013Q2

REPORT INFORMATION
  Report Type: Spontaneous
  Country: SE (occurrence: SE)
  Receive Date: 20130412
  Receipt Date: 20130412
  Transmission Date: 20140414
  Serious: Yes (Disabling)
  Sender: FDA-Public Use
  Company Number: SE-009507513-1304SWE004910

PATIENT
  Age: 5 Year
  Sex: Male

DRUGS (2)
  1. NASONEX [Suspect]
     Dosage: UNK, QD
     Route: 045
     Dates: start: 20130211, end: 20130218
  2. COCILLANA ETYFIN (COCILLANA (+) ETHYLMORPHINE HYDROCHLORIDE (+) SENECA [Suspect]
     Dosage: 2.5 ML , TID
     Route: 048
     Dates: start: 20130211, end: 20130218

REACTIONS (8)
  - Head titubation [Not Recovered/Not Resolved]
  - Musculoskeletal discomfort [Not Recovered/Not Resolved]
  - Nasal discomfort [Not Recovered/Not Resolved]
  - Cough [Not Recovered/Not Resolved]
  - Tic [Not Recovered/Not Resolved]
  - Grimacing [Not Recovered/Not Resolved]
  - Excessive eye blinking [Not Recovered/Not Resolved]
  - Tremor [Not Recovered/Not Resolved]
